FAERS Safety Report 4694933-9 (Version None)
Quarter: 2005Q2

REPORT INFORMATION
  Report Type: 
  Country: None (occurrence: None)
  Receive Date: 20050620
  Receipt Date: 20050607
  Transmission Date: 20051028
  Serious: Yes (Hospitalization, Other)
  Sender: FDA-Public Use
  Company Number: 2005084496

PATIENT
  Age: 36 Year
  Sex: Female
  Weight: 63.5036 kg

DRUGS (2)
  1. LISTERINE [Suspect]
     Indication: INTENTIONAL MISUSE
     Dosage: ORAL
     Route: 048
     Dates: end: 20050610
  2. ANTIDEPRESSANTS                (ANTIDEPRESSANTS) [Concomitant]

REACTIONS (6)
  - ABDOMINAL PAIN [None]
  - DYSPEPSIA [None]
  - FALL [None]
  - HEPATIC PAIN [None]
  - INTENTIONAL MISUSE [None]
  - LOSS OF CONSCIOUSNESS [None]
